FAERS Safety Report 24803476 (Version 1)
Quarter: 2025Q1

REPORT INFORMATION
  Report Type: Other
  Country: IL (occurrence: IL)
  Receive Date: 20250103
  Receipt Date: 20250103
  Transmission Date: 20250408
  Serious: Yes (Hospitalization, Other)
  Sender: ANI
  Company Number: IL-ANIPHARMA-015268

PATIENT
  Age: 78 Year
  Sex: Female

DRUGS (4)
  1. PHENYTOIN SODIUM [Suspect]
     Active Substance: PHENYTOIN SODIUM
     Indication: Epilepsy
  2. OFLOXACIN [Concomitant]
     Active Substance: OFLOXACIN
     Indication: Antibiotic therapy
     Route: 048
  3. VALPROIC ACID [Concomitant]
     Active Substance: VALPROIC ACID
     Indication: Epilepsy
  4. CEFTRIAXONE [Concomitant]
     Active Substance: CEFTRIAXONE
     Indication: Antibiotic therapy

REACTIONS (1)
  - Seizure [Unknown]
